FAERS Safety Report 19091600 (Version 5)
Quarter: 2022Q1

REPORT INFORMATION
  Report Type: Spontaneous
  Country: US (occurrence: US)
  Receive Date: 20210405
  Receipt Date: 20220211
  Transmission Date: 20220423
  Serious: Yes (Hospitalization, Other)
  Sender: FDA-Public Use
  Company Number: US-BIOGEN-2021BI00996250

PATIENT
  Sex: Female

DRUGS (1)
  1. TYSABRI [Suspect]
     Active Substance: NATALIZUMAB
     Indication: Multiple sclerosis
     Route: 065
     Dates: start: 20200520, end: 20200520

REACTIONS (13)
  - Gait inability [Unknown]
  - Central nervous system lesion [Unknown]
  - Vertebral column mass [Unknown]
  - Malaise [Not Recovered/Not Resolved]
  - Vision blurred [Unknown]
  - Fall [Recovered/Resolved]
  - Depressed level of consciousness [Unknown]
  - Seizure [Unknown]
  - Myocardial infarction [Unknown]
  - Dyspnoea [Unknown]
  - Asthenia [Unknown]
  - Amnesia [Unknown]
  - Repetitive speech [Unknown]
